FAERS Safety Report 4455912-X (Version None)
Quarter: 2004Q3

REPORT INFORMATION
  Report Type: 
  Country: None (occurrence: None)
  Receive Date: 20040920
  Receipt Date: 20040910
  Transmission Date: 20050211
  Serious: Yes (Hospitalization)
  Sender: FDA-Public Use
  Company Number: 2004-DE-04652GD

PATIENT
  Age: 65 Year
  Sex: Female

DRUGS (14)
  1. METHOTREXATE [Suspect]
     Indication: RHEUMATOID ARTHRITIS
     Dosage: 20 MG/WEEK
  2. LEFLUNOMIDE [Suspect]
     Indication: RHEUMATOID ARTHRITIS
     Dosage: 20 MG
  3. HYDROXYCHLOROQUINE SULFATE [Suspect]
     Indication: RHEUMATOID ARTHRITIS
     Dosage: 200 MG
  4. SULFASALAZINE [Suspect]
     Indication: RHEUMATOID ARTHRITIS
     Dosage: 3 G (NR, TWICE)
  5. MELOXICAM (MELOXICAM) [Concomitant]
  6. OXAZEPAM [Concomitant]
  7. OMEPRAZOLE [Concomitant]
  8. PIPERAZINE (PIPERAZINE) [Concomitant]
  9. TEMAZEPAM [Concomitant]
  10. SALMETEROL (SALMETEROL) [Concomitant]
  11. SALBUTAMOL (SALBUTAMOL) [Concomitant]
  12. DOXEPIN (DOXEPIN) [Concomitant]
  13. CYPROHEPTADINE HCL [Concomitant]
  14. AMILORIDE HCL AND HYDROCHLOROTHIAZIDE [Concomitant]

REACTIONS (8)
  - BONE MARROW DEPRESSION [None]
  - CELLULITIS [None]
  - DIARRHOEA [None]
  - DRUG INTERACTION [None]
  - MOUTH ULCERATION [None]
  - PANCYTOPENIA [None]
  - SEPSIS [None]
  - THERAPEUTIC AGENT TOXICITY [None]
